FAERS Safety Report 4839215-7 (Version None)
Quarter: 2005Q4

REPORT INFORMATION
  Report Type: 
  Country: None (occurrence: None)
  Receive Date: 20051128
  Receipt Date: 20051128
  Transmission Date: 20060501
  Serious: No
  Sender: FDA-Public Use
  Company Number: None

PATIENT
  Sex: Female
  Weight: 77.1115 kg

DRUGS (15)
  1. TEQUIN [Suspect]
     Indication: SINUSITIS
     Dosage: 400MG  QD  PO
     Route: 048
     Dates: start: 20051007, end: 20051017
  2. LEVAQUIN [Suspect]
     Indication: SINUSITIS
     Dosage: 500MG  QD  PO
     Route: 048
     Dates: start: 20051111, end: 20051121
  3. ZOLOFT [Concomitant]
  4. BUPROPION HCL [Concomitant]
  5. LIPITOR [Concomitant]
  6. CLONAZEPAM [Concomitant]
  7. MIRAPEX [Concomitant]
  8. ASPIRIN [Concomitant]
  9. GLUCOSAMINE CHONDROITIN [Concomitant]
  10. ASCORBIC ACID [Concomitant]
  11. VITAMIN B COMPLEX CAP [Concomitant]
  12. CALCIUM GLUCONATE [Concomitant]
  13. MELATONIN [Concomitant]
  14. HYDROCHLOROTHIAZIDE [Concomitant]
  15. ALPRAZOLAM [Concomitant]

REACTIONS (9)
  - ACTIVITIES OF DAILY LIVING IMPAIRED [None]
  - ARTHRALGIA [None]
  - CONDITION AGGRAVATED [None]
  - DIFFICULTY IN WALKING [None]
  - GAIT DISTURBANCE [None]
  - JOINT SWELLING [None]
  - LETHARGY [None]
  - SHOULDER PAIN [None]
  - SINUSITIS [None]
